FAERS Safety Report 12637042 (Version 1)
Quarter: 2016Q3

REPORT INFORMATION
  Report Type: Not Available
  Country: US (occurrence: US)
  Receive Date: 20160809
  Receipt Date: 20160809
  Transmission Date: 20161109
  Serious: Yes (Hospitalization)
  Sender: FDA-Public Use
  Company Number: US-BEH-2014042190

PATIENT
  Age: 70 Year
  Sex: Male

DRUGS (1)
  1. PRIVIGEN [Suspect]
     Active Substance: HUMAN IMMUNOGLOBULIN G
     Indication: MYASTHENIA GRAVIS
     Dosage: 20 GM
     Route: 042
     Dates: start: 20130522, end: 20130522

REACTIONS (8)
  - Disorientation [Unknown]
  - Asthenia [Unknown]
  - Blood glucose decreased [Unknown]
  - Mental status changes [Unknown]
  - Somnolence [Unknown]
  - Depressed level of consciousness [Unknown]
  - Dysarthria [Unknown]
  - Meningitis aseptic [Unknown]

NARRATIVE: CASE EVENT DATE: 20130522
